FAERS Safety Report 18118932 (Version 1)
Quarter: 2020Q3

REPORT INFORMATION
  Report Type: Spontaneous
  Country: AR (occurrence: AR)
  Receive Date: 20200806
  Receipt Date: 20200806
  Transmission Date: 20201103
  Serious: Yes (Other)
  Sender: FDA-Public Use
  Company Number: AR-PFIZER INC-2020298146

PATIENT
  Age: 77 Year
  Sex: Female

DRUGS (2)
  1. IBRANCE [Suspect]
     Active Substance: PALBOCICLIB
     Indication: BREAST CANCER METASTATIC
     Dosage: 75 MG, CYCLIC (DAILY 3X1 SCHEME)
     Dates: start: 20170410
  2. FULVESTRANT. [Concomitant]
     Active Substance: FULVESTRANT
     Indication: BREAST CANCER METASTATIC

REACTIONS (10)
  - General physical health deterioration [Unknown]
  - Muscular weakness [Unknown]
  - Arthralgia [Unknown]
  - Dizziness [Unknown]
  - Hyperthyroidism [Unknown]
  - Weight decreased [Unknown]
  - Malaise [Unknown]
  - Blood calcium abnormal [Unknown]
  - Pain [Unknown]
  - Decreased appetite [Unknown]
